FAERS Safety Report 7310865-1 (Version None)
Quarter: 2011Q1

REPORT INFORMATION
  Report Type: 
  Country: None (occurrence: None)
  Receive Date: 20110224
  Receipt Date: 20110221
  Transmission Date: 20110831
  Serious: Yes (Death)
  Sender: FDA-Public Use
  Company Number: JP-SANOFI-AVENTIS-2011SA011072

PATIENT
  Age: 67 Year
  Sex: Female

DRUGS (1)
  1. ELPLAT [Suspect]

REACTIONS (1)
  - SUDDEN DEATH [None]
